FAERS Safety Report 5411061-5 (Version None)
Quarter: 2007Q3

REPORT INFORMATION
  Report Type: 
  Country: None (occurrence: None)
  Receive Date: 20070810
  Receipt Date: 20070809
  Transmission Date: 20080115
  Serious: Yes (Death, Hospitalization)
  Sender: FDA-Public Use
  Company Number: BE-BAYER-200713261GDS

PATIENT
  Age: 60 Year
  Sex: Male

DRUGS (2)
  1. AVELOX [Suspect]
     Indication: SINUSITIS
     Route: 048
     Dates: start: 20070411, end: 20070421
  2. CLAVUCID 875 [Concomitant]
     Indication: SINUSITIS
     Route: 048

REACTIONS (5)
  - ACUTE HEPATIC FAILURE [None]
  - ANOREXIA [None]
  - MALAISE [None]
  - MULTI-ORGAN FAILURE [None]
  - MYALGIA [None]
